FAERS Safety Report 18123986 (Version 1)
Quarter: 2020Q3

REPORT INFORMATION
  Report Type: Spontaneous
  Country: ID (occurrence: ID)
  Receive Date: 20200807
  Receipt Date: 20200807
  Transmission Date: 20201103
  Serious: Yes (Hospitalization)
  Sender: FDA-Public Use
  Company Number: ID-AMNEAL PHARMACEUTICALS-2020-AMRX-02288

PATIENT
  Age: 32 Year
  Sex: Female

DRUGS (3)
  1. LORATADINE. [Suspect]
     Active Substance: LORATADINE
     Indication: FOOD ALLERGY
     Dosage: 10 MILLIGRAM, QD
     Route: 048
     Dates: start: 201911, end: 2019
  2. METHYLPREDNISOLONE SODIUM SUCCINATE. [Suspect]
     Active Substance: METHYLPREDNISOLONE SODIUM SUCCINATE
     Indication: FOOD ALLERGY
     Dosage: 4 MILLIGRAM, BID
     Route: 048
     Dates: start: 201911, end: 2019
  3. CETIRIZINE [Suspect]
     Active Substance: CETIRIZINE HYDROCHLORIDE
     Indication: FOOD ALLERGY
     Dosage: 10 MILLIGRAM, QD
     Route: 048
     Dates: start: 201911, end: 2019

REACTIONS (1)
  - Drug eruption [Recovering/Resolving]

NARRATIVE: CASE EVENT DATE: 201911
